FAERS Safety Report 15027268 (Version 2)
Quarter: 2018Q3

REPORT INFORMATION
  Report Type: Spontaneous
  Country: NL (occurrence: NL)
  Receive Date: 20180619
  Receipt Date: 20180622
  Transmission Date: 20181010
  Serious: Yes (Death, Life-Threatening, Hospitalization)
  Sender: FDA-Public Use
  Company Number: NL-TEVA-2018-NL-910062

PATIENT
  Age: 86 Year
  Sex: Female
  Weight: 86 kg

DRUGS (9)
  1. ACENOCOUMAROL 1MG [Concomitant]
     Active Substance: ACENOCOUMAROL
     Route: 065
  2. CALCI CHEW 500/800 [Concomitant]
     Dosage: 1 DOSAGE FORMS DAILY;
  3. PANTOPRAZOL 40MG [Concomitant]
     Active Substance: PANTOPRAZOLE SODIUM
     Dosage: 40 MILLIGRAM DAILY;
  4. AUGMENTIN [Suspect]
     Active Substance: AMOXICILLIN\CLAVULANATE POTASSIUM
     Dosage: 1 GIFT
  5. BUMETANIDE 7,5MG [Concomitant]
     Dosage: 7.5 MILLIGRAM DAILY;
  6. CEFUROXIM IV [Suspect]
     Active Substance: CEFUROXIME
     Dosage: 3 GIFTS
  7. AMIODARON 200MG [Concomitant]
     Dosage: 200 MILLIGRAM DAILY;
  8. EUTHYROX  150 MCG [Concomitant]
     Dosage: 150 MICROGRAM DAILY;
  9. ALLOPURINOL PCH TABLET 100MG TABLET, 100 MG (MILLIGRAM) [Suspect]
     Active Substance: ALLOPURINOL
     Indication: GOUT
     Dosage: 200 MILLIGRAM DAILY;
     Dates: start: 20180323

REACTIONS (5)
  - Rash [Unknown]
  - Renal impairment [Fatal]
  - Face oedema [Unknown]
  - Hyperbilirubinaemia [Unknown]
  - Liver function test abnormal [Fatal]

NARRATIVE: CASE EVENT DATE: 20180502
